FAERS Safety Report 9906948 (Version 1)
Quarter: 2014Q1

REPORT INFORMATION
  Report Type: Spontaneous
  Country: DK (occurrence: DK)
  Receive Date: 20140218
  Receipt Date: 20140218
  Transmission Date: 20141002
  Serious: Yes (Death, Life-Threatening, Hospitalization)
  Sender: FDA-Public Use
  Company Number: DK-WATSON-2014-02735

PATIENT
  Age: 56 Year
  Sex: Male

DRUGS (1)
  1. DICLOFENAC RAPID ACTAVIS [Suspect]
     Indication: GOUT
     Dosage: UNK. STYRKE: 50 MG.
     Route: 048

REACTIONS (6)
  - Cardiac arrest [Fatal]
  - Cardiac failure acute [Fatal]
  - Coronary artery thrombosis [Fatal]
  - Chest pain [Not Recovered/Not Resolved]
  - Fatigue [Not Recovered/Not Resolved]
  - Dyspnoea [Not Recovered/Not Resolved]
